FAERS Safety Report 19782094 (Version 1)
Quarter: 2021Q3

REPORT INFORMATION
  Report Type: Spontaneous
  Country: CN (occurrence: CN)
  Receive Date: 20210903
  Receipt Date: 20210903
  Transmission Date: 20211014
  Serious: Yes (Other)
  Sender: FDA-Public Use
  Company Number: CN-ROCHE-2902154

PATIENT
  Age: 65 Year
  Sex: Male

DRUGS (5)
  1. TECENTRIQ [Suspect]
     Active Substance: ATEZOLIZUMAB
     Indication: SMALL CELL LUNG CANCER
     Dosage: ETOPOSIDE + CARBOPLATIN + ATEZOLIZUMAB
     Route: 065
     Dates: start: 20200606
  2. TECENTRIQ [Suspect]
     Active Substance: ATEZOLIZUMAB
     Dosage: ATEZOLIZUMAB
     Route: 065
     Dates: start: 20210416
  3. CARBOPLATIN. [Concomitant]
     Active Substance: CARBOPLATIN
     Indication: SMALL CELL LUNG CANCER
     Dosage: ETOPOSIDE + CARBOPLATIN + ATEZOLIZUMAB
     Dates: start: 20200606
  4. TECENTRIQ [Suspect]
     Active Substance: ATEZOLIZUMAB
     Dosage: ATEZOLIZUMAB
     Route: 065
     Dates: start: 20201208
  5. ETOPOSIDE. [Concomitant]
     Active Substance: ETOPOSIDE
     Indication: SMALL CELL LUNG CANCER
     Dosage: ETOPOSIDE + CARBOPLATIN + ATEZOLIZUMAB
     Dates: start: 20200606

REACTIONS (2)
  - Interstitial lung disease [Unknown]
  - Myelosuppression [Unknown]
